FAERS Safety Report 5883999-6 (Version None)
Quarter: 2008Q3

REPORT INFORMATION
  Report Type: 
  Country: None (occurrence: None)
  Receive Date: 20080915
  Receipt Date: 20080910
  Transmission Date: 20090109
  Serious: Yes (Hospitalization, Disabling)
  Sender: FDA-Public Use
  Company Number: D0057282A

PATIENT
  Age: 36 Year
  Sex: Female
  Weight: 61 kg

DRUGS (6)
  1. VIANI 50-250 DISKUS [Suspect]
     Indication: ASTHMA
     Route: 055
     Dates: start: 20020701
  2. GLUCOCORTICOIDS [Concomitant]
     Route: 055
     Dates: start: 19990101
  3. BETA-2 MIMETICS [Concomitant]
     Route: 055
     Dates: start: 19990101
  4. BEROTEC [Concomitant]
     Route: 065
  5. TELFAST [Concomitant]
     Route: 065
  6. XYZAL [Concomitant]
     Route: 065
     Dates: start: 20070501, end: 20070701

REACTIONS (7)
  - BIPOLAR DISORDER [None]
  - DEPRESSION [None]
  - DISTURBANCE IN ATTENTION [None]
  - HYPOMANIA [None]
  - INSOMNIA [None]
  - RESTLESSNESS [None]
  - SOMNOLENCE [None]
